FAERS Safety Report 24273456 (Version 1)
Quarter: 2024Q3

REPORT INFORMATION
  Report Type: Spontaneous
  Country: US (occurrence: US)
  Receive Date: 20240902
  Receipt Date: 20240902
  Transmission Date: 20241016
  Serious: Yes (Other)
  Sender: AMGEN
  Company Number: US-AMGEN-USASP2024171645

PATIENT
  Age: 64 Year
  Sex: Female

DRUGS (6)
  1. EPOETIN ALFA [Suspect]
     Active Substance: ERYTHROPOIETIN
     Indication: Anaemia
     Dosage: 40000 UNIT, Q12H
     Route: 042
  2. DARBEPOETIN ALFA [Suspect]
     Active Substance: DARBEPOETIN ALFA
     Indication: Anaemia
     Dosage: 300 MICROGRAM, Q2WK
     Route: 042
  3. IRON SUCROSE [Concomitant]
     Active Substance: IRON SUCROSE
     Dosage: (200-300MG DAILY)
     Route: 042
  4. FOLATE SODIUM [Concomitant]
     Active Substance: FOLATE SODIUM
     Indication: Melaena
     Dosage: 1 MILLIGRAM, QD
     Route: 048
  5. TRANEXAMIC ACID [Concomitant]
     Active Substance: TRANEXAMIC ACID
     Dosage: 1 GRAM
     Route: 042
  6. TRANEXAMIC ACID [Concomitant]
     Active Substance: TRANEXAMIC ACID
     Dosage: 3 MILLIGRAM/KILOGRAM, QH CONTINUOUS INFUSION (FOR 48 HOURS)
     Route: 042

REACTIONS (1)
  - Melaena [Not Recovered/Not Resolved]
